FAERS Safety Report 9746253 (Version 1)
Quarter: 2013Q4

REPORT INFORMATION
  Report Type: Spontaneous
  Country: AU (occurrence: AU)
  Receive Date: 20131211
  Receipt Date: 20131211
  Transmission Date: 20140711
  Serious: Yes (Hospitalization)
  Sender: FDA-Public Use
  Company Number: AU-PFIZER INC-2013351343

PATIENT
  Sex: Male

DRUGS (1)
  1. LYRICA [Suspect]
     Dosage: 75 MG, 2 CAPSULES IN THE MORNING AND 2 CAPSULES AT NIGHT
     Dates: start: 201312

REACTIONS (13)
  - Back disorder [Unknown]
  - Vision blurred [Unknown]
  - Speech disorder [Unknown]
  - Tinnitus [Unknown]
  - Nausea [Unknown]
  - Dizziness [Unknown]
  - Fatigue [Unknown]
  - Somnolence [Unknown]
  - Headache [Unknown]
  - Tremor [Unknown]
  - Vomiting [Unknown]
  - Visual impairment [Unknown]
  - Photophobia [Unknown]
